FAERS Safety Report 15979364 (Version 1)
Quarter: 2019Q1

REPORT INFORMATION
  Report Type: Report from Study
  Country: US (occurrence: US)
  Receive Date: 20190219
  Receipt Date: 20190219
  Transmission Date: 20190418
  Serious: Yes (Death)
  Sender: FDA-Public Use
  Company Number: US-ASTELLAS-2018US055405

PATIENT
  Age: 67 Year
  Sex: Male

DRUGS (2)
  1. ISAVUCONAZOLE [Suspect]
     Active Substance: ISAVUCONAZOLE
     Indication: ASPERGILLUS INFECTION
     Dosage: 2 CAPSULES, ONCE DAILY
     Route: 048
     Dates: start: 20180910, end: 20181101
  2. ISAVUCONAZOLE [Suspect]
     Active Substance: ISAVUCONAZOLE
     Dosage: 372 MG, ONCE DAILY (2 CAPSULES, ONCE DAILY)
     Route: 048
     Dates: start: 20181116

REACTIONS (3)
  - Product dose omission [Unknown]
  - Death [Fatal]
  - Product supply issue [Unknown]

NARRATIVE: CASE EVENT DATE: 20190130
